FAERS Safety Report 5803498-7 (Version None)
Quarter: 2008Q3

REPORT INFORMATION
  Report Type: 
  Country: None (occurrence: None)
  Receive Date: 20080708
  Receipt Date: 20080703
  Transmission Date: 20090109
  Serious: Yes (Death)
  Sender: FDA-Public Use
  Company Number: DK-SANOFI-SYNTHELABO-F01200801027

PATIENT
  Sex: Male

DRUGS (31)
  1. ZOFRAN [Concomitant]
     Indication: PREMEDICATION
     Dosage: 8MG ON INFUSION DAYS
  2. PREDNISOLONE [Concomitant]
     Indication: PREMEDICATION
     Dosage: 50MG ON THE ACTUAL INFUSION DAY AND THE NEXT 2 FOLLOWING DAYS
     Route: 065
  3. TAVEGYL [Concomitant]
     Dosage: 2 MG
     Route: 042
     Dates: start: 20070307, end: 20070307
  4. TAVEGYL [Concomitant]
     Dosage: 2 MG
     Route: 042
     Dates: start: 20070328, end: 20070328
  5. ZANTAC [Concomitant]
     Indication: PREMEDICATION
     Dosage: 50 MG
     Route: 065
     Dates: start: 20070307, end: 20070307
  6. ZANTAC [Concomitant]
     Dosage: 50 MG
     Route: 065
     Dates: start: 20070328, end: 20070328
  7. SOLU-MEDROL [Concomitant]
     Indication: PREMEDICATION
     Dosage: 40 MG
     Route: 065
     Dates: start: 20070307, end: 20070307
  8. SOLU-MEDROL [Concomitant]
     Dosage: 40 MG
     Route: 065
     Dates: start: 20070328, end: 20070328
  9. FLUCONAZOLE [Concomitant]
     Dosage: 50 MG
     Route: 065
     Dates: start: 20070601, end: 20070607
  10. PANTOPRAZOLE SODIUM [Concomitant]
     Dosage: 40 MG
     Dates: start: 20070530
  11. MORPHINE [Concomitant]
     Indication: PAIN
     Dosage: 10 MG PRN MAX. X 6
     Route: 065
     Dates: start: 20070221, end: 20070307
  12. MORPHINE [Concomitant]
     Dosage: 10 MG PRN MAX. X 4
     Route: 065
     Dates: start: 20070307, end: 20070530
  13. MORPHINE [Concomitant]
     Dosage: 30-40 MG PRN
     Route: 065
     Dates: start: 20070530
  14. LACTULOSE [Concomitant]
     Dosage: UNK
     Route: 065
     Dates: start: 20070307
  15. LAXOBERAL [Concomitant]
     Dosage: UNK
     Route: 065
     Dates: start: 20070307
  16. CONTALGIN [Concomitant]
     Indication: PAIN
     Route: 065
     Dates: end: 20070307
  17. CONTALGIN [Concomitant]
     Route: 065
     Dates: start: 20070307, end: 20070418
  18. CONTALGIN [Concomitant]
     Route: 065
     Dates: start: 20070418, end: 20070502
  19. CONTALGIN [Concomitant]
     Route: 065
     Dates: start: 20070502, end: 20070509
  20. CONTALGIN [Concomitant]
     Dosage: 60 - 70 MG DAILY
     Route: 065
     Dates: start: 20070509, end: 20070530
  21. CONTALGIN [Concomitant]
     Route: 065
     Dates: start: 20070530, end: 20070613
  22. CONTALGIN [Concomitant]
     Route: 065
     Dates: start: 20070613
  23. COVERSYL [Concomitant]
     Dosage: 4 MG
     Route: 065
     Dates: end: 20070509
  24. AMLODIPINE [Concomitant]
     Dosage: 10 MG
     Route: 065
  25. ZARATOR [Concomitant]
     Dosage: 10 MG
     Route: 065
  26. RADIATION THERAPY [Suspect]
     Dosage: 1.8 GY X 33
     Route: 065
     Dates: start: 20070328, end: 20070518
  27. ISOVORINE [Suspect]
     Dosage: 30MG QD 25APR07 TO 18MAY07 EXCEPT WEEKENDS; 30MG QD FOR 2WKS FROM 30MAY07
     Route: 065
  28. ERBITUX [Suspect]
     Dosage: 750MG: 21MAR07; 460MG: 28MAR07, 04APR07, 11APR07, 18APR07, 25APR07, 02MAY07, 09MAY07, 15MAY07
     Route: 065
     Dates: start: 20070515, end: 20070515
  29. RESCUVOLINE [Suspect]
     Dosage: 60MG QD FOR 2 WKS FROM 07MAR07; 60MG QD EXCEPT WEEKENDS 28MAR07 TO 24APR07
     Route: 065
     Dates: start: 20070424, end: 20070424
  30. UFT [Suspect]
     Dosage: 500MG FOR 2WKS 07MAR07; 200MG QD EXCEPT WEEKENDS 28MAR07 TO 18MAY07; 400MG QD FOR 2WKS 30MAY07
     Route: 048
  31. ELOXATIN [Suspect]
     Indication: OESOPHAGEAL CARCINOMA
     Dosage: 244MG: 07MAR07, 30MAY07;  55MG: 28MAR07, 11APR07, 25APR07, 09MAR07.
     Route: 065
     Dates: start: 20070530, end: 20070530

REACTIONS (1)
  - DEATH [None]
